FAERS Safety Report 6278259-8 (Version None)
Quarter: 2009Q3

REPORT INFORMATION
  Report Type: 
  Country: None (occurrence: None)
  Receive Date: 20090722
  Receipt Date: 20090715
  Transmission Date: 20100115
  Serious: Yes (Hospitalization)
  Sender: FDA-Public Use
  Company Number: FR-ASTRAZENECA-2009SE03980

PATIENT
  Age: 59 Year
  Sex: Male

DRUGS (8)
  1. TRUVADA [Suspect]
     Route: 048
     Dates: start: 20071018, end: 20081108
  2. SUSTIVA [Suspect]
     Indication: HIV TEST POSITIVE
     Route: 048
     Dates: start: 20071018, end: 20081108
  3. SUSTIVA [Suspect]
     Route: 048
  4. MOPRAL [Concomitant]
     Route: 048
  5. COVERSYL [Concomitant]
  6. GLUCOR [Concomitant]
  7. RISORDAN [Concomitant]
  8. TAHOR [Concomitant]

REACTIONS (1)
  - RENAL FAILURE [None]
